FAERS Safety Report 5269101-2 (Version None)
Quarter: 2007Q1

REPORT INFORMATION
  Report Type: 
  Country: None (occurrence: None)
  Receive Date: 20070314
  Receipt Date: 20070228
  Transmission Date: 20070707
  Serious: Yes (Hospitalization)
  Sender: FDA-Public Use
  Company Number: 2007S1001775

PATIENT
  Age: 37 Year
  Sex: Female
  Weight: 38.1022 kg

DRUGS (7)
  1. FENTANYL TRANSDERMAL SYSTEM [Suspect]
     Indication: BRAIN NEOPLASM
     Dosage: 50 UG/HR; EVERY 3 DAYS; TRANSDERMAL
     Route: 062
     Dates: start: 20070223, end: 20070225
  2. FENTANYL TRANSDERMAL SYSTEM [Suspect]
     Indication: PAIN
     Dosage: 50 UG/HR; EVERY 3 DAYS; TRANSDERMAL
     Route: 062
     Dates: start: 20070223, end: 20070225
  3. DICYCLOMINE /00068601/ [Concomitant]
  4. DIAZEPAM [Concomitant]
  5. TRAMADOL HCL [Concomitant]
  6. PETHIDINE HYDROCHLORIDE [Concomitant]
  7. ESCITALOPRAM [Concomitant]

REACTIONS (4)
  - DEHYDRATION [None]
  - DRUG WITHDRAWAL SYNDROME [None]
  - GASTROENTERITIS VIRAL [None]
  - PHARMACEUTICAL PRODUCT COMPLAINT [None]
